FAERS Safety Report 5146887-9 (Version None)
Quarter: 2006Q4

REPORT INFORMATION
  Report Type: 
  Country: None (occurrence: None)
  Receive Date: 20061109
  Receipt Date: 20061030
  Transmission Date: 20070319
  Serious: Yes (Other)
  Sender: FDA-Public Use
  Company Number: FR-GLAXOSMITHKLINE-B0445725A

PATIENT
  Age: 56 Year
  Sex: Male

DRUGS (2)
  1. DEROXAT [Suspect]
     Indication: PANIC ATTACK
     Dosage: 10MG PER DAY
     Route: 048
     Dates: start: 20061001, end: 20061001
  2. XANAX [Concomitant]
     Indication: PANIC ATTACK
     Dosage: .25MG THREE TIMES PER DAY
     Route: 048
     Dates: start: 20061001

REACTIONS (3)
  - ANXIETY [None]
  - PANIC ATTACK [None]
  - SUICIDAL IDEATION [None]
